FAERS Safety Report 5270273-4 (Version None)
Quarter: 2007Q1

REPORT INFORMATION
  Report Type: 
  Country: None (occurrence: None)
  Receive Date: 20070320
  Receipt Date: 20070312
  Transmission Date: 20070707
  Serious: Yes (Hospitalization, Other)
  Sender: FDA-Public Use
  Company Number: US-ELI_LILLY_AND_COMPANY-US200701003182

PATIENT
  Age: 56 Year
  Sex: Male

DRUGS (3)
  1. ILETIN [Suspect]
     Indication: DIABETES MELLITUS INSULIN-DEPENDENT
     Dosage: 3 U, 2/D
     Dates: start: 19690101, end: 20010101
  2. ILETIN [Suspect]
     Dosage: UNK, OTHER
     Dates: start: 19690101, end: 20010101
  3. NOVOLOG [Concomitant]
     Dosage: UNK, UNKNOWN
     Route: 058
     Dates: start: 20010101

REACTIONS (15)
  - BLOOD GLUCOSE FLUCTUATION [None]
  - BLOOD GLUCOSE INCREASED [None]
  - CATARACT [None]
  - DIABETIC RETINOPATHY [None]
  - EYE DISORDER [None]
  - EYE HAEMORRHAGE [None]
  - GLYCOSYLATED HAEMOGLOBIN INCREASED [None]
  - RETINAL DETACHMENT [None]
  - RETINAL DISORDER [None]
  - RETINAL VASCULAR DISORDER [None]
  - SCAR [None]
  - TUNNEL VISION [None]
  - VISUAL ACUITY REDUCED [None]
  - VISUAL DISTURBANCE [None]
  - VISUAL FIELD DEFECT [None]
